FAERS Safety Report 14592797 (Version 1)
Quarter: 2018Q1

REPORT INFORMATION
  Report Type: Spontaneous
  Country: US (occurrence: US)
  Receive Date: 20180302
  Receipt Date: 20180302
  Transmission Date: 20180509
  Serious: No
  Sender: FDA-Public Use
  Company Number: US-ENDO PHARMACEUTICALS INC-2017-002811

PATIENT
  Age: 65 Year
  Sex: Male
  Weight: 67.12 kg

DRUGS (2)
  1. XIAFLEX [Suspect]
     Active Substance: COLLAGENASE CLOSTRIDIUM HISTOLYTICUM
     Dosage: UNK, SINGLE, ONE INJECTION INTO PINKY FINGER OF LEFT HAND
     Route: 026
     Dates: start: 20170327, end: 20170327
  2. XIAFLEX [Suspect]
     Active Substance: COLLAGENASE CLOSTRIDIUM HISTOLYTICUM
     Indication: DUPUYTREN^S CONTRACTURE
     Dosage: UNK, SINGLE, ONE INJECTION INTO PINKY FINGER AND ONE INJECTION INTO RING FINGER OF RIGHT HAND
     Route: 026
     Dates: start: 20170217

REACTIONS (15)
  - Unevaluable event [Unknown]
  - Peripheral swelling [Not Recovered/Not Resolved]
  - Hepatic enzyme increased [Not Recovered/Not Resolved]
  - Rash macular [Unknown]
  - Weight decreased [Unknown]
  - Injection site pain [Recovered/Resolved]
  - Affective disorder [Not Recovered/Not Resolved]
  - Nausea [Not Recovered/Not Resolved]
  - Axillary pain [Recovered/Resolved]
  - Eating disorder symptom [Not Recovered/Not Resolved]
  - Dehydration [Not Recovered/Not Resolved]
  - Axillary mass [Recovered/Resolved]
  - Hypersomnia [Not Recovered/Not Resolved]
  - Vomiting [Not Recovered/Not Resolved]
  - Mass [Recovered/Resolved]

NARRATIVE: CASE EVENT DATE: 2017
